FAERS Safety Report 9901210 (Version 3)
Quarter: 2014Q1

REPORT INFORMATION
  Report Type: Report from Study
  Country: CA (occurrence: CA)
  Receive Date: 20140217
  Receipt Date: 20140307
  Transmission Date: 20141002
  Serious: Yes (Hospitalization, Other)
  Sender: FDA-Public Use
  Company Number: CA-ABBVIE-14P-028-1200131-00

PATIENT
  Sex: Male
  Weight: 65.8 kg

DRUGS (3)
  1. HUMIRA [Suspect]
     Indication: RHEUMATOID ARTHRITIS
     Route: 058
     Dates: start: 20130227, end: 20140114
  2. HUMIRA [Suspect]
     Dosage: LATEST DOSE: 10-FEB-2014
     Route: 058
     Dates: start: 20140211
  3. IV MEDICATIONS [Suspect]
     Indication: PNEUMONIA
     Dates: start: 20140101

REACTIONS (5)
  - Renal failure [Recovered/Resolved]
  - Pneumonia [Recovered/Resolved]
  - Sepsis [Recovered/Resolved]
  - Dehydration [Recovered/Resolved]
  - Acute myocardial infarction [Recovered/Resolved]
